FAERS Safety Report 8594240-8 (Version None)
Quarter: 2012Q3

REPORT INFORMATION
  Report Type: 
  Country: None (occurrence: None)
  Receive Date: 20120814
  Receipt Date: 20120807
  Transmission Date: 20120928
  Serious: Yes (Hospitalization)
  Sender: FDA-Public Use
  Company Number: GR-ABBOTT-12P-066-0952503-00

PATIENT
  Sex: Female

DRUGS (1)
  1. HUMIRA [Suspect]
     Indication: PSORIASIS
     Route: 058
     Dates: start: 20120413

REACTIONS (6)
  - BLOOD UREA INCREASED [None]
  - BLOOD CREATININE INCREASED [None]
  - HERNIA PAIN [None]
  - RASH [None]
  - HOUSE DUST ALLERGY [None]
  - INGUINAL HERNIA [None]
